FAERS Safety Report 4514154-X (Version None)
Quarter: 2004Q4

REPORT INFORMATION
  Report Type: 
  Country: None (occurrence: None)
  Receive Date: 20041129
  Receipt Date: 20041108
  Transmission Date: 20050328
  Serious: Yes (Hospitalization)
  Sender: FDA-Public Use
  Company Number: M2004-1760

PATIENT
  Age: 74 Year
  Sex: Male

DRUGS (12)
  1. AMOXICILLIN [Suspect]
     Indication: PROPHYLAXIS
     Dates: start: 20040815
  2. GINSENG [Suspect]
     Dosage: 3 CAPSULES TDS, ORAL
     Route: 048
     Dates: start: 20040712
  3. REISHI MUSHROOM (GANODERMA LUCIDIUM) [Suspect]
     Dosage: 3 CAPSULES TDS, ORAL
     Route: 048
     Dates: start: 20040712
  4. SKULLCAP (SCUTELLARIA LATERIFLORA) [Suspect]
     Dosage: 3 CAPSULES TDS, ORAL
     Route: 047
     Dates: start: 20040712
  5. CHRYSANTHERMUM PARTHENIUM (TANACEUM PARTHENIUM) [Suspect]
     Dosage: 3 CAPSULES TD, ORAL
     Route: 048
     Dates: start: 20040712
  6. SAW PALMETTO (SAW PALMETTO) [Suspect]
     Dosage: 3 CAPSULES TDS, ORAL
     Route: 048
     Dates: start: 20040712
  7. LICORICE ROOT (LICORICE ROOT) [Suspect]
     Dosage: 3 CAPSULES TDS, ORAL
     Route: 048
  8. GANODERMA LUCIDUM (GANODERMA LICIDUM) [Suspect]
     Dosage: 3 CAPSULES TD, ORAL
     Route: 048
  9. RABDOSIA (RABDOSIA) [Suspect]
     Dosage: 3 CAPSULES TDS,ORAL
     Route: 048
     Dates: start: 20040712
  10. ISATIS TINCTORIA (ISATIS TINCTORIA) [Suspect]
     Dosage: 3 CAPSULES TDS , ORAL
     Route: 048
     Dates: start: 20040712
  11. MORIIFOLIUM (MORIIFOLIUM) [Suspect]
     Dosage: 3 CAPSULES TDS , ORAL
     Route: 048
     Dates: start: 20040712
  12. DIHYDROCODEINE (DIHYDROCODEINE) [Suspect]
     Indication: PAIN
     Dosage: 30 MG TDS, ORAL
     Route: 048
     Dates: start: 20040815

REACTIONS (1)
  - FALL [None]
